FAERS Safety Report 5147850-4 (Version None)
Quarter: 2006Q4

REPORT INFORMATION
  Report Type: 
  Country: None (occurrence: None)
  Receive Date: 20060918
  Receipt Date: 20050726
  Transmission Date: 20070319
  Serious: Yes (Other)
  Sender: FDA-Public Use
  Company Number: US-JNJFOC-20050705981

PATIENT
  Age: 75 Year
  Sex: Male
  Weight: 104.3273 kg

DRUGS (17)
  1. TOPAMAX [Suspect]
     Indication: NEURALGIA
     Dosage: 25 MG, 2 IN 1 DAY, ORAL
     Route: 048
     Dates: start: 20050601, end: 20050601
  2. LOPRESSOR [Concomitant]
  3. PROSCAR (UNSPECIFIED ) FINASTERIDE [Concomitant]
  4. PRILOSEC [Concomitant]
  5. IMDUR [Concomitant]
  6. LIPITOR [Concomitant]
  7. PLAVIX [Concomitant]
  8. ASPIRIN [Concomitant]
  9. COMBIVENT [Concomitant]
  10. ADVAIR (SERETIDE MITE) [Concomitant]
  11. PREDNISONE TAB [Concomitant]
  12. LASIX [Concomitant]
  13. POTASSIUM (POTASSIUM) [Concomitant]
  14. MAGNESIUM (MAGNESIUM) [Concomitant]
  15. TYLENOL #4 (ACETAMINOPHEN/CODEINE) [Concomitant]
  16. HYTRIN [Concomitant]
  17. TRICOR [Concomitant]

REACTIONS (4)
  - ANGINA PECTORIS [None]
  - BLOOD MAGNESIUM DECREASED [None]
  - NAUSEA [None]
  - TREMOR [None]
